FAERS Safety Report 12540154 (Version 1)
Quarter: 2016Q3

REPORT INFORMATION
  Report Type: Spontaneous
  Country: GB (occurrence: GB)
  Receive Date: 20160708
  Receipt Date: 20160708
  Transmission Date: 20161109
  Serious: Yes (Other)
  Sender: FDA-Public Use
  Company Number: GB-PFIZER INC-2016327791

PATIENT
  Age: 47 Year
  Sex: Female

DRUGS (2)
  1. PHENERGAN [Concomitant]
     Active Substance: PROMETHAZINE HYDROCHLORIDE
  2. LORAZEPAM. [Suspect]
     Active Substance: LORAZEPAM
     Dosage: 3 MG SIX TIME DAILY
     Dates: start: 20151024

REACTIONS (4)
  - Overdose [Unknown]
  - Body temperature increased [Unknown]
  - Heart rate increased [Unknown]
  - Anger [Unknown]

NARRATIVE: CASE EVENT DATE: 20151024
